FAERS Safety Report 22948320 (Version 2)
Quarter: 2023Q4

REPORT INFORMATION
  Report Type: Spontaneous
  Country: CA (occurrence: CA)
  Receive Date: 20230915
  Receipt Date: 20231106
  Transmission Date: 20240109
  Serious: Yes (Other)
  Sender: FDA-Public Use
  Company Number: CA-PFIZER INC-202300298922

PATIENT
  Age: 34 Year
  Sex: Female

DRUGS (1)
  1. ABRILADA [Suspect]
     Active Substance: ADALIMUMAB-AFZB
     Indication: Crohn^s disease
     Dosage: 160MG W0, 80MG W2 THEN 40MG Q 2 WEEKS STARTING W4
     Route: 058
     Dates: start: 20230620, end: 20230830

REACTIONS (2)
  - Rash [Unknown]
  - Blister [Unknown]
